FAERS Safety Report 9110413 (Version 2)
Quarter: 2014Q1

REPORT INFORMATION
  Report Type: Spontaneous
  Country: US (occurrence: US)
  Receive Date: 20130219
  Receipt Date: 20140213
  Transmission Date: 20141002
  Serious: No
  Sender: FDA-Public Use
  Company Number: US-BRISTOL-MYERS SQUIBB COMPANY-16585127

PATIENT
  Age: 53 Year
  Sex: Female
  Weight: 56.23 kg

DRUGS (2)
  1. ORENCIA [Suspect]
     Indication: RHEUMATOID ARTHRITIS
     Dosage: INF MAR12, LAS INF: 23APR2012
     Route: 058
     Dates: start: 20110909
  2. CELEBREX [Concomitant]

REACTIONS (5)
  - Hypoaesthesia [Unknown]
  - Pain in extremity [Unknown]
  - Pain [Unknown]
  - Medication error [Unknown]
  - Fatigue [Unknown]
